FAERS Safety Report 4746011-8 (Version None)
Quarter: 2005Q3

REPORT INFORMATION
  Report Type: 
  Country: None (occurrence: None)
  Receive Date: 20050816
  Receipt Date: 20050811
  Transmission Date: 20060218
  Serious: Yes (Hospitalization)
  Sender: FDA-Public Use
  Company Number: PHBS2005US11796

PATIENT
  Age: 18 Year
  Sex: Female

DRUGS (5)
  1. LOVENOX [Concomitant]
     Dosage: 2 MG/KG/D
  2. LOVENOX [Concomitant]
     Dosage: 1.5 MG/KG/D
  3. ALDOMET [Concomitant]
     Dosage: 750 MG, TID
  4. CYCLOSPORINE [Suspect]
     Indication: NEPHROTIC SYNDROME
     Route: 065
  5. LABETALOL [Concomitant]
     Dosage: 500 MG, BID

REACTIONS (14)
  - BACK PAIN [None]
  - BLOOD PRESSURE INCREASED [None]
  - CAESAREAN SECTION [None]
  - DRUG EXPOSURE DURING PREGNANCY [None]
  - FIBRIN D DIMER INCREASED [None]
  - FLANK PAIN [None]
  - FOETAL HEART RATE DECELERATION [None]
  - HAEMOGLOBIN DECREASED [None]
  - NAUSEA [None]
  - PLATELET COUNT INCREASED [None]
  - PRE-ECLAMPSIA [None]
  - RENAL VEIN THROMBOSIS [None]
  - SUBCUTANEOUS HAEMATOMA [None]
  - VOMITING [None]
